FAERS Safety Report 6903417-6 (Version None)
Quarter: 2010Q3

REPORT INFORMATION
  Report Type: 
  Country: None (occurrence: None)
  Receive Date: 20100803
  Receipt Date: 20081003
  Transmission Date: 20110219
  Serious: No
  Sender: FDA-Public Use
  Company Number: US-PFIZER INC-2008083814

PATIENT
  Age: 77 Year
  Sex: Female
  Weight: 50.9 kg

DRUGS (4)
  1. LYRICA [Suspect]
     Indication: BACK PAIN
     Dates: start: 20080829, end: 20080901
  2. FLECTOR [Suspect]
     Indication: BACK PAIN
     Dates: start: 20080828, end: 20080901
  3. LORTAB [Concomitant]
  4. PREMARIN [Concomitant]

REACTIONS (2)
  - DIARRHOEA [None]
  - VOMITING [None]
